FAERS Safety Report 16975620 (Version 1)
Quarter: 2019Q4

REPORT INFORMATION
  Report Type: Spontaneous
  Country: NL (occurrence: NL)
  Receive Date: 20191030
  Receipt Date: 20191030
  Transmission Date: 20200122
  Serious: Yes (Other)
  Sender: FDA-Public Use
  Company Number: US-SLATE RUN PHARMACEUTICALS-SLTR-AE-19-109

PATIENT
  Age: 9 Year
  Sex: Female

DRUGS (7)
  1. IMIPENEM AND CILASTATIN [Concomitant]
     Active Substance: CILASTATIN SODIUM\IMIPENEM
     Dosage: 60/60 MG/KG/DAY IN 2-4 DOSES
     Route: 042
  2. TIGECYCLINE. [Suspect]
     Active Substance: TIGECYCLINE
     Dosage: 2.4 MG/KG/DAY IN 2 DOSES
     Route: 042
  3. CLOFAZIMINE [Concomitant]
     Active Substance: CLOFAZIMINE
     Dosage: IF WEIGHT IS GREATER THAN 40KG, THEN 100 MG ONCE DAILY
     Route: 048
  4. 70436-019-82 AZITHROMYCIN FOR INJECTION DRY VIAL USP 500 MG [Suspect]
     Active Substance: AZITHROMYCIN
     Indication: ANTIBIOTIC THERAPY
     Route: 048
  5. TIGECYCLINE. [Suspect]
     Active Substance: TIGECYCLINE
     Dosage: 5 MG/ML THREE DROPS THREE TIMES DAILY
     Route: 061
  6. IMIPENEM AND CILASTATIN [Concomitant]
     Active Substance: CILASTATIN SODIUM\IMIPENEM
     Dosage: 5/5 MG/ML THREE DROPS THREE TIMES DAILY
     Route: 061
  7. METOCLOPRAMIDE. [Concomitant]
     Active Substance: METOCLOPRAMIDE

REACTIONS (6)
  - Vena cava thrombosis [Recovered/Resolved]
  - Arthropathy [Unknown]
  - Vomiting [Recovered/Resolved]
  - Transaminases increased [Unknown]
  - Nausea [Recovered/Resolved]
  - Fatigue [Unknown]
